FAERS Safety Report 6755061-1 (Version None)
Quarter: 2010Q2

REPORT INFORMATION
  Report Type: 
  Country: None (occurrence: None)
  Receive Date: 20100604
  Receipt Date: 20100526
  Transmission Date: 20101027
  Serious: Yes (Hospitalization)
  Sender: FDA-Public Use
  Company Number: US-BIOGENIDEC-2010BI010086

PATIENT
  Age: 52 Year
  Sex: Female

DRUGS (16)
  1. TYSABRI [Suspect]
     Indication: MULTIPLE SCLEROSIS
     Route: 042
     Dates: start: 20061012
  2. COUMADIN [Concomitant]
  3. COLACE [Concomitant]
  4. OMEPRAZOLE [Concomitant]
  5. BACLOFEN [Concomitant]
  6. NEURONTIN [Concomitant]
  7. TIZANIDINE [Concomitant]
  8. COUMADIN [Concomitant]
  9. VOLTAREN [Concomitant]
  10. VICODIN [Concomitant]
  11. CYMBALTA [Concomitant]
  12. METHADONE HCL [Concomitant]
  13. REQUIP [Concomitant]
  14. ZOFRAN [Concomitant]
  15. ZESTORETIC [Concomitant]
  16. NEXIUM [Concomitant]

REACTIONS (7)
  - ANAEMIA [None]
  - HYPOTENSION [None]
  - INFECTED SKIN ULCER [None]
  - OTOTOXICITY [None]
  - RENAL FAILURE [None]
  - SEPTIC ARTHRITIS STREPTOCOCCAL [None]
  - WOUND INFECTION STAPHYLOCOCCAL [None]
